FAERS Safety Report 5742234-X (Version None)
Quarter: 2008Q2

REPORT INFORMATION
  Report Type: 
  Country: None (occurrence: None)
  Receive Date: 20080514
  Receipt Date: 20080514
  Transmission Date: 20081010
  Serious: Yes (Other)
  Sender: FDA-Public Use
  Company Number: None

PATIENT
  Age: 55 Year
  Sex: Male

DRUGS (1)
  1. DIGITEK  0.25MG  AMIDE-BERTEK- [Suspect]
     Dosage: 0.25MG  DAILY  PO
     Route: 048
     Dates: start: 20080402, end: 20080508

REACTIONS (5)
  - DIZZINESS [None]
  - HEART RATE DECREASED [None]
  - HYPERHIDROSIS [None]
  - HYPOTENSION [None]
  - MYALGIA [None]
